FAERS Safety Report 7895205-1 (Version None)
Quarter: 2011Q4

REPORT INFORMATION
  Report Type: 
  Country: None (occurrence: None)
  Receive Date: 20111106
  Receipt Date: 20110824
  Transmission Date: 20120403
  Serious: No
  Sender: FDA-Public Use
  Company Number: US-AMGEN-USASP2011043326

PATIENT
  Age: 36 Year
  Sex: Male

DRUGS (1)
  1. ENBREL [Suspect]
     Indication: TUMOUR NECROSIS FACTOR RECEPTOR-ASSOCIATED PERIODIC SYNDROME
     Dosage: 25 MG, 2 TIMES/WK
     Dates: start: 20070505

REACTIONS (3)
  - IMPAIRED WORK ABILITY [None]
  - BEDRIDDEN [None]
  - RHEUMATOID ARTHRITIS [None]
